FAERS Safety Report 10306256 (Version 2)
Quarter: 2014Q3

REPORT INFORMATION
  Report Type: Report from Study
  Country: MX (occurrence: MX)
  Receive Date: 20140715
  Receipt Date: 20140715
  Transmission Date: 20150326
  Serious: Yes (Hospitalization, Other)
  Sender: FDA-Public Use
  Company Number: PHHY2013MX088548

PATIENT
  Age: 53 Year
  Sex: Female

DRUGS (3)
  1. CO-DIOVAN [Suspect]
     Active Substance: HYDROCHLOROTHIAZIDE\VALSARTAN
     Dosage: 1 DF (320/12.5MG), DAILY
     Route: 048
     Dates: start: 20130914
  2. OMEPRAZOLE. [Concomitant]
     Active Substance: OMEPRAZOLE
     Dosage: 1 DF, DAILY
     Dates: start: 201306
  3. CO-DIOVAN [Suspect]
     Active Substance: HYDROCHLOROTHIAZIDE\VALSARTAN
     Indication: HYPERTENSION
     Dosage: 1 DF, (320/12.5MG) DAILY
     Route: 048
     Dates: start: 201304, end: 20130630

REACTIONS (5)
  - Gastric ulcer perforation [Recovered/Resolved]
  - Facial bones fracture [Recovered/Resolved]
  - Eye swelling [Recovered/Resolved]
  - Peritonitis [Recovered/Resolved]
  - Aneurysm [Unknown]

NARRATIVE: CASE EVENT DATE: 20130630
